FAERS Safety Report 10205005 (Version 1)
Quarter: 2014Q2

REPORT INFORMATION
  Report Type: Spontaneous
  Country: US (occurrence: US)
  Receive Date: 20140529
  Receipt Date: 20140529
  Transmission Date: 20141212
  Serious: No
  Sender: FDA-Public Use
  Company Number: US-PFIZER INC-2014143891

PATIENT
  Age: 78 Year
  Sex: Female
  Weight: 58.05 kg

DRUGS (2)
  1. GABAPENTIN [Suspect]
     Indication: NEUROPATHY PERIPHERAL
     Dosage: UNK
  2. MACROBID [Concomitant]

REACTIONS (1)
  - Drug ineffective [Unknown]
